FAERS Safety Report 10873142 (Version 1)
Quarter: 2015Q1

REPORT INFORMATION
  Report Type: Spontaneous
  Country: US (occurrence: US)
  Receive Date: 20150227
  Receipt Date: 20150227
  Transmission Date: 20150721
  Serious: Yes (Other)
  Sender: FDA-Public Use
  Company Number: US-AUROBINDO-AUR-APL-2015-01608

PATIENT
  Age: 3 Month

DRUGS (2)
  1. OXYCODONE [Suspect]
     Active Substance: OXYCODONE
     Indication: CRANIOSYNOSTOSIS
     Dosage: 0.5 MG, UNK
     Route: 048
  2. FENTANYL. [Suspect]
     Active Substance: FENTANYL
     Indication: CRANIOSYNOSTOSIS
     Dosage: 10 ?G, UNK
     Route: 042

REACTIONS (2)
  - Oxygen saturation decreased [Recovering/Resolving]
  - Respiratory depression [Recovering/Resolving]
